FAERS Safety Report 7508881-X (Version None)
Quarter: 2011Q2

REPORT INFORMATION
  Report Type: 
  Country: None (occurrence: None)
  Receive Date: 20110527
  Receipt Date: 20110523
  Transmission Date: 20111010
  Serious: Yes (Death, Hospitalization, Other)
  Sender: FDA-Public Use
  Company Number: PHHY2011CO44618

PATIENT
  Sex: Male

DRUGS (1)
  1. SANDOSTATIN LAR [Suspect]
     Indication: ENDOCRINE NEOPLASM
     Dosage: 30 MG, QD
     Route: 030
     Dates: start: 20110411

REACTIONS (4)
  - FEEDING DISORDER [None]
  - ENDOCRINE NEOPLASM [None]
  - CARDIO-RESPIRATORY ARREST [None]
  - MELAENA [None]
